FAERS Safety Report 4961652-0 (Version None)
Quarter: 2006Q1

REPORT INFORMATION
  Report Type: 
  Country: None (occurrence: None)
  Receive Date: 20060329
  Receipt Date: 20060316
  Transmission Date: 20060701
  Serious: Yes (Death)
  Sender: FDA-Public Use
  Company Number: 2006JP000710

PATIENT
  Age: 41 Year
  Sex: Male

DRUGS (1)
  1. PROGRAF [Suspect]
     Indication: IMMUNOSUPPRESSION
     Dosage: 1 MG, ORAL
     Route: 048

REACTIONS (2)
  - HEPATIC FAILURE [None]
  - SEPSIS [None]
